FAERS Safety Report 14868492 (Version 1)
Quarter: 2018Q2

REPORT INFORMATION
  Report Type: Spontaneous
  Country: DE (occurrence: DE)
  Receive Date: 20180509
  Receipt Date: 20180509
  Transmission Date: 20180711
  Serious: Yes (Death, Hospitalization)
  Sender: FDA-Public Use
  Company Number: DE-ROCHE-2119722

PATIENT
  Age: 52 Year
  Sex: Male

DRUGS (1)
  1. ZELBORAF [Suspect]
     Active Substance: VEMURAFENIB
     Indication: PRODUCT USED FOR UNKNOWN INDICATION
     Route: 065

REACTIONS (8)
  - Leukaemia [Unknown]
  - Multiple organ dysfunction syndrome [Fatal]
  - Leukocytosis [Unknown]
  - Peritonitis [Fatal]
  - Sepsis [Fatal]
  - C-reactive protein increased [Unknown]
  - Pneumonia [Fatal]
  - General physical health deterioration [Unknown]
